FAERS Safety Report 5810821-6 (Version None)
Quarter: 2008Q3

REPORT INFORMATION
  Report Type: 
  Country: None (occurrence: None)
  Receive Date: 20080710
  Receipt Date: 20080616
  Transmission Date: 20090109
  Serious: Yes (Hospitalization, Other)
  Sender: FDA-Public Use
  Company Number: 2008AL005495

PATIENT
  Age: 88 Year
  Sex: Male
  Weight: 58.9676 kg

DRUGS (5)
  1. DIGOXIN [Suspect]
     Indication: ARRHYTHMIA
     Dosage: 0.125MG DAILY PO
     Route: 048
  2. COREG [Concomitant]
  3. ASPIRIN [Concomitant]
  4. ISOSORBID [Concomitant]
  5. QUINAPRIL [Concomitant]

REACTIONS (5)
  - DIZZINESS [None]
  - EXTRASYSTOLES [None]
  - HEART RATE IRREGULAR [None]
  - HYPERTENSION [None]
  - HYPOTENSION [None]
